FAERS Safety Report 18385180 (Version 1)
Quarter: 2020Q4

REPORT INFORMATION
  Report Type: Spontaneous
  Country: KR (occurrence: KR)
  Receive Date: 20201015
  Receipt Date: 20201015
  Transmission Date: 20210114
  Serious: Yes (Other)
  Sender: FDA-Public Use
  Company Number: KR-SUN PHARMACEUTICAL INDUSTRIES LTD-2020RR-263715

PATIENT
  Age: 22 Year
  Sex: Female

DRUGS (9)
  1. METHYLPREDNISOLONE. [Suspect]
     Active Substance: METHYLPREDNISOLONE
     Indication: PRODUCT USED FOR UNKNOWN INDICATION
     Dosage: 2 MILLIGRAM/KILOGRAM
     Route: 065
  2. MOXIFLOXACIN. [Concomitant]
     Active Substance: MOXIFLOXACIN
     Indication: DYSURIA
     Dosage: 400 MILLIGRAM
     Route: 042
  3. IBUPROFEN. [Suspect]
     Active Substance: IBUPROFEN
     Indication: HEADACHE
  4. IBUPROFEN. [Suspect]
     Active Substance: IBUPROFEN
     Indication: PYREXIA
     Dosage: UNK
     Route: 065
  5. AMOXICILLIN/CLAVULANIC ACID [Suspect]
     Active Substance: AMOXICILLIN\CLAVULANIC ACID
     Indication: PYREXIA
     Dosage: UNK
     Route: 065
  6. AMOXICILLIN/CLAVULANIC ACID [Suspect]
     Active Substance: AMOXICILLIN\CLAVULANIC ACID
     Indication: HEADACHE
  7. PARACETAMOL [Suspect]
     Active Substance: ACETAMINOPHEN
     Indication: HEADACHE
     Dosage: UNK
     Route: 065
  8. NORTRIPTYLINE [Suspect]
     Active Substance: NORTRIPTYLINE
     Indication: HEADACHE
     Dosage: UNK
     Route: 065
  9. MOXIFLOXACIN. [Concomitant]
     Active Substance: MOXIFLOXACIN
     Indication: PYURIA

REACTIONS (5)
  - Pyuria [Unknown]
  - Retrograde amnesia [Unknown]
  - Toxic epidermal necrolysis [Recovered/Resolved]
  - Dysuria [Unknown]
  - Generalised tonic-clonic seizure [Recovered/Resolved]
